FAERS Safety Report 17869932 (Version 6)
Quarter: 2022Q4

REPORT INFORMATION
  Report Type: Spontaneous
  Country: DE (occurrence: DE)
  Receive Date: 20200608
  Receipt Date: 20221203
  Transmission Date: 20230113
  Serious: Yes (Hospitalization, Other)
  Sender: FDA-Public Use
  Company Number: None

PATIENT
  Age: 64 Year
  Sex: Female

DRUGS (20)
  1. CLOPIDOGREL [Suspect]
     Active Substance: CLOPIDOGREL BISULFATE
     Indication: Product used for unknown indication
     Dosage: STRENGTH-75 MG, 1-0-0-0
  2. METHOTREXATE [Suspect]
     Active Substance: METHOTREXATE
     Indication: Product used for unknown indication
     Dosage: STRENGTH-10 MG / WEEK, 1XDI,
     Route: 048
  3. ASPIRIN [Suspect]
     Active Substance: ASPIRIN
     Indication: Product used for unknown indication
     Dosage: STRENGTH-100 MG, 0-1-0-0
  4. NALOXONE HYDROCHLORIDE\TILIDINE HYDROCHLORIDE [Suspect]
     Active Substance: NALOXONE HYDROCHLORIDE\TILIDINE HYDROCHLORIDE
     Indication: Product used for unknown indication
  5. JANUMET [Concomitant]
     Active Substance: METFORMIN HYDROCHLORIDE\SITAGLIPTIN PHOSPHATE
     Dosage: STRENGTH- 50MG/1000MG
     Route: 048
  6. ACTRAPID [Concomitant]
     Active Substance: INSULIN HUMAN
     Dosage: ACCORDING TO BZ, STRENGTH: 100IU / ML PRE-FILLED PEN
  7. PANTOPRAZOLE SODIUM [Concomitant]
     Active Substance: PANTOPRAZOLE SODIUM
     Dosage: STRENGTH- 40 MG, 1-0-1-0
  8. RAMIPRIL [Concomitant]
     Active Substance: RAMIPRIL
     Dosage: STRENGTH- 2.5 MG, 1-0-0-0
  9. SPIRIVA [Concomitant]
     Active Substance: TIOTROPIUM BROMIDE MONOHYDRATE
     Dosage: STRENGTH-18 MICROGRAMS, 1-0-0-0
     Route: 055
  10. LANTUS [Concomitant]
     Active Substance: INSULIN GLARGINE
     Dosage: STRENGTH-24 IE, 0-1-0-0,
     Route: 058
  11. FLUTICASONE PROPIONATE\SALMETEROL XINAFOATE [Concomitant]
     Active Substance: FLUTICASONE PROPIONATE\SALMETEROL XINAFOATE
     Dosage: 50 MICROGRAM / 500 MICROGRAM DISKUS, 1-0-1-0, METERED DOSE INHALER
     Route: 055
  12. FOLIC ACID [Concomitant]
     Active Substance: FOLIC ACID
     Dosage: STRENGTH-5 MG / WEEK, 1XMI
  13. ALLOPURINOL [Concomitant]
     Active Substance: ALLOPURINOL
     Dosage: STRENGTH-300 MG, 0.5-0-0-0, 150 MG, 1-0-0-0
  14. ATORVASTATIN [Concomitant]
     Active Substance: ATORVASTATIN
     Dosage: STRENGTH-40 MG, 0-0-1-0, 60 MG, 0-0-1-0, TABLET
  15. CLOPIDOGREL [Concomitant]
     Active Substance: CLOPIDOGREL BISULFATE
     Dosage: 75 MG, 1-0-0-0
  16. ESOMEPRAZOLE [Concomitant]
     Active Substance: ESOMEPRAZOLE
     Dosage: 20 MG, 1-0-0-0
  17. METAMIZOL [Concomitant]
     Active Substance: METAMIZOLE SODIUM
     Dosage: 500 MG, 1-1-1-1, TABLET
     Route: 048
  18. MAGALDRATE [Concomitant]
     Active Substance: MAGALDRATE
     Dosage: 1600 MG, 0-0-1-0, SYRUP
     Route: 048
  19. TIOTROPIUM BROMIDE [Concomitant]
     Active Substance: TIOTROPIUM BROMIDE
     Dosage: 18 UG, 1-0-0-0, CAPSULE
     Route: 055
  20. Riopan [Concomitant]
     Dosage: 0-0-1-0, GEL

REACTIONS (19)
  - Medication error [Unknown]
  - Contusion [Unknown]
  - Dizziness [Unknown]
  - Circulatory collapse [Unknown]
  - Liver function test increased [Unknown]
  - White blood cell count decreased [Unknown]
  - Product prescribing error [Unknown]
  - Gastritis erosive [Unknown]
  - Anaemia macrocytic [Unknown]
  - General physical health deterioration [Unknown]
  - Duodenal ulcer [Unknown]
  - Hepatic failure [Unknown]
  - Nausea [Recovered/Resolved]
  - Weight decreased [Unknown]
  - Liver function test abnormal [Unknown]
  - Anaemia [Unknown]
  - Abdominal pain upper [Unknown]
  - Abdominal pain [Recovered/Resolved]
  - Vomiting [Recovered/Resolved]
